FAERS Safety Report 14046155 (Version 2)
Quarter: 2017Q4

REPORT INFORMATION
  Report Type: Spontaneous
  Country: US (occurrence: US)
  Receive Date: 20171005
  Receipt Date: 20171129
  Transmission Date: 20180321
  Serious: Yes (Hospitalization, Other)
  Sender: FDA-Public Use
  Company Number: US-JNJFOC-20171002466

PATIENT
  Age: 76 Year
  Sex: Female

DRUGS (8)
  1. MULTIVITAMINS [Concomitant]
     Active Substance: VITAMINS
  2. PROGRAF [Concomitant]
     Active Substance: TACROLIMUS\TACROLIMUS ANHYDROUS
  3. IMBRUVICA [Suspect]
     Active Substance: IBRUTINIB
     Indication: CHRONIC GRAFT VERSUS HOST DISEASE
     Route: 048
     Dates: start: 20170420, end: 20170727
  4. VITAMIN D [Concomitant]
     Active Substance: CHOLECALCIFEROL
  5. FOLIC ACID. [Concomitant]
     Active Substance: FOLIC ACID
  6. PENICILLIN NOS [Concomitant]
     Active Substance: PENICILLIN
  7. IMBRUVICA [Suspect]
     Active Substance: IBRUTINIB
     Indication: CHRONIC GRAFT VERSUS HOST DISEASE
     Route: 048
     Dates: start: 20170419, end: 201708
  8. MAGNESIUM [Concomitant]
     Active Substance: MAGNESIUM

REACTIONS (6)
  - Product use in unapproved indication [Unknown]
  - Ventricular tachyarrhythmia [Recovered/Resolved]
  - Off label use [Unknown]
  - Hypokalaemia [Unknown]
  - Atrial fibrillation [Recovered/Resolved]
  - Hypocalcaemia [Unknown]

NARRATIVE: CASE EVENT DATE: 20170420
